FAERS Safety Report 11009203 (Version 1)
Quarter: 2015Q2

REPORT INFORMATION
  Report Type: Spontaneous
  Country: FR (occurrence: FR)
  Receive Date: 20150410
  Receipt Date: 20150410
  Transmission Date: 20150821
  Serious: Yes (Other)
  Sender: FDA-Public Use
  Company Number: FR-SUN PHARMACEUTICAL INDUSTRIES LTD-2015R1-95459

PATIENT
  Age: 70 Year
  Sex: Female

DRUGS (1)
  1. DOXYCYCLINE. [Suspect]
     Active Substance: DOXYCYCLINE
     Indication: BENIGN FAMILIAL PEMPHIGUS
     Dosage: 100 MG, DAILY
     Route: 065

REACTIONS (2)
  - Treatment noncompliance [Recovered/Resolved]
  - Disease recurrence [Recovered/Resolved]
